FAERS Safety Report 5338141-7 (Version None)
Quarter: 2007Q2

REPORT INFORMATION
  Report Type: 
  Country: None (occurrence: None)
  Receive Date: 20070530
  Receipt Date: 20070522
  Transmission Date: 20071010
  Serious: Yes (Other)
  Sender: FDA-Public Use
  Company Number: PHBS2007BR08516

PATIENT
  Age: 4 Year
  Sex: Female
  Weight: 15 kg

DRUGS (1)
  1. CATAFLAM [Suspect]
     Indication: PHARYNGOLARYNGEAL PAIN
     Route: 048

REACTIONS (3)
  - IMPETIGO [None]
  - PHARYNGOLARYNGEAL PAIN [None]
  - PYREXIA [None]
